FAERS Safety Report 6644570-1 (Version None)
Quarter: 2010Q1

REPORT INFORMATION
  Report Type: 
  Country: None (occurrence: None)
  Receive Date: 20100317
  Receipt Date: 20100310
  Transmission Date: 20100710
  Serious: Yes (Hospitalization, Disabling)
  Sender: FDA-Public Use
  Company Number: OMPQ-NO-1001S-0023

PATIENT
  Age: 56 Year
  Sex: Female

DRUGS (2)
  1. OMNIPAQUE 350 [Suspect]
     Indication: DIZZINESS
     Dosage: ALL OR PART OF THE DOSE OF 70 ML EXTRAVASATED SINGLE DOSE,  EXTRAVASATION
     Route: 067
     Dates: start: 20080317, end: 20080317
  2. OMNIPAQUE 350 [Suspect]
     Indication: NEURALGIA
     Dosage: ALL OR PART OF THE DOSE OF 70 ML EXTRAVASATED SINGLE DOSE,  EXTRAVASATION
     Route: 067
     Dates: start: 20080317, end: 20080317

REACTIONS (5)
  - ADHESION [None]
  - COMPARTMENT SYNDROME [None]
  - EXTRAVASATION [None]
  - MOTOR DYSFUNCTION [None]
  - SENSORY LOSS [None]
